FAERS Safety Report 12199902 (Version 2)
Quarter: 2016Q2

REPORT INFORMATION
  Report Type: Spontaneous
  Country: FR (occurrence: FR)
  Receive Date: 20160322
  Receipt Date: 20160426
  Transmission Date: 20160815
  Serious: Yes (Other)
  Sender: FDA-Public Use
  Company Number: FR-BRISTOL-MYERS SQUIBB COMPANY-BMS-2016-018192

PATIENT
  Age: 30 Year
  Sex: Female

DRUGS (1)
  1. KENACORT [Suspect]
     Active Substance: TRIAMCINOLONE
     Indication: RHINITIS ALLERGIC
     Dosage: 40 MG, UNK
     Route: 030
     Dates: start: 201504

REACTIONS (2)
  - Fat tissue decreased [Unknown]
  - Panniculitis [Unknown]

NARRATIVE: CASE EVENT DATE: 201509
